FAERS Safety Report 9462388 (Version 1)
Quarter: 2013Q3

REPORT INFORMATION
  Report Type: Spontaneous
  Country: US (occurrence: None)
  Receive Date: 20130815
  Receipt Date: 20130815
  Transmission Date: 20140515
  Serious: No
  Sender: FDA-Public Use
  Company Number: None

PATIENT
  Sex: Female

DRUGS (2)
  1. VELCADE [Suspect]
     Indication: PLASMA CELL MYELOMA
  2. REVLIMID [Suspect]
     Indication: PLASMA CELL MYELOMA

REACTIONS (6)
  - Neuropathy peripheral [None]
  - Weight decreased [None]
  - Feeling abnormal [None]
  - Fatigue [None]
  - Quality of life decreased [None]
  - Mobility decreased [None]
